FAERS Safety Report 23045580 (Version 2)
Quarter: 2023Q4

REPORT INFORMATION
  Report Type: Spontaneous
  Country: HU (occurrence: HU)
  Receive Date: 20231009
  Receipt Date: 20231017
  Transmission Date: 20240110
  Serious: Yes (Other)
  Sender: FDA-Public Use
  Company Number: HU-ROCHE-3430756

PATIENT
  Age: 36 Year
  Sex: Male

DRUGS (4)
  1. RITUXIMAB [Suspect]
     Active Substance: RITUXIMAB
     Indication: Systemic lupus erythematosus
     Dosage: UNK
     Route: 065
     Dates: start: 202205
  2. HYDROXYCHLOROQUINE [Concomitant]
     Active Substance: HYDROXYCHLOROQUINE
     Dosage: UNK
  3. RIVAROXABAN [Concomitant]
     Active Substance: RIVAROXABAN
     Indication: Anticoagulant therapy
     Dosage: UNK
  4. VITAMIN K [Concomitant]
     Active Substance: PHYTONADIONE
     Indication: Anticoagulant therapy
     Dosage: UNK

REACTIONS (2)
  - Pneumonitis [Unknown]
  - Off label use [Unknown]
